FAERS Safety Report 14679858 (Version 1)
Quarter: 2018Q1

REPORT INFORMATION
  Report Type: Spontaneous
  Country: US (occurrence: US)
  Receive Date: 20180325
  Receipt Date: 20180325
  Transmission Date: 20180509
  Serious: Yes (Life-Threatening, Hospitalization, Disabling, Other)
  Sender: FDA-Public Use
  Company Number: None

PATIENT
  Age: 63 Year
  Sex: Female
  Weight: 45 kg

DRUGS (8)
  1. ABILIFY [Suspect]
     Active Substance: ARIPIPRAZOLE
  2. VRAYLAR [Concomitant]
     Active Substance: CARIPRAZINE
  3. RISPERDAL [Suspect]
     Active Substance: RISPERIDONE
  4. THC TETRAHYDROCANNABINOL [Suspect]
     Active Substance: DRONABINOL
     Indication: DRUG THERAPY
     Route: 048
     Dates: start: 20150401, end: 20180325
  5. XANAX [Suspect]
     Active Substance: ALPRAZOLAM
  6. CLOZARIL [Suspect]
     Active Substance: CLOZAPINE
  7. CLONAZEPAM. [Suspect]
     Active Substance: CLONAZEPAM
  8. CLOZARIL [Concomitant]
     Active Substance: CLOZAPINE

REACTIONS (21)
  - Panic attack [None]
  - Insomnia [None]
  - Suicide attempt [None]
  - Suicidal ideation [None]
  - Abnormal behaviour [None]
  - Tachyphrenia [None]
  - Psychotic disorder [None]
  - Apparent death [None]
  - Anxiety [None]
  - Crying [None]
  - Emotional disorder [None]
  - Drug ineffective [None]
  - Gait disturbance [None]
  - Restlessness [None]
  - Violence-related symptom [None]
  - Psychogenic seizure [None]
  - Fall [None]
  - Palpitations [None]
  - Facial paralysis [None]
  - Akathisia [None]
  - Bruxism [None]

NARRATIVE: CASE EVENT DATE: 20160401
